FAERS Safety Report 14213497 (Version 2)
Quarter: 2017Q4

REPORT INFORMATION
  Report Type: Spontaneous
  Country: US (occurrence: US)
  Receive Date: 20171122
  Receipt Date: 20171205
  Transmission Date: 20180321
  Serious: No
  Sender: FDA-Public Use
  Company Number: US-GLAXOSMITHKLINE-US2017177889

PATIENT
  Age: 31 Year
  Sex: Male
  Weight: 70.3 kg

DRUGS (5)
  1. BUPROPION XL [Concomitant]
     Active Substance: BUPROPION
  2. CLONAZEPAM. [Concomitant]
     Active Substance: CLONAZEPAM
  3. CIALIS [Concomitant]
     Active Substance: TADALAFIL
  4. LAMOTRIGINE TABLET [Suspect]
     Active Substance: LAMOTRIGINE
     Indication: BIPOLAR II DISORDER
     Dosage: 100 MG, QD
     Dates: start: 201705
  5. GABAPENTIN. [Concomitant]
     Active Substance: GABAPENTIN

REACTIONS (2)
  - Product use in unapproved indication [Unknown]
  - Herpes zoster [Unknown]

NARRATIVE: CASE EVENT DATE: 201705
